FAERS Safety Report 10081979 (Version 1)
Quarter: 2014Q2

REPORT INFORMATION
  Report Type: Spontaneous
  Country: US (occurrence: None)
  Receive Date: 20140415
  Receipt Date: 20140415
  Transmission Date: 20141212
  Serious: No
  Sender: FDA-Public Use
  Company Number: None

PATIENT
  Sex: Male
  Weight: 3.5 kg

DRUGS (3)
  1. PHYTONADIONE [Suspect]
     Indication: HAEMORRHAGE PROPHYLAXIS
     Dosage: 1 MG ONCE INTRAMUSCULAR
     Route: 030
     Dates: start: 20140410, end: 20140410
  2. ERYTHROMYCIN OPTH OINT [Concomitant]
  3. HEPATITIS B PED VACCINE [Concomitant]

REACTIONS (2)
  - Injury associated with device [None]
  - Needle issue [None]
